FAERS Safety Report 25123448 (Version 1)
Quarter: 2025Q1

REPORT INFORMATION
  Report Type: Spontaneous
  Country: US (occurrence: US)
  Receive Date: 20250326
  Receipt Date: 20250326
  Transmission Date: 20250408
  Serious: No
  Sender: Kenvue
  Company Number: US-KENVUE-20250301468

PATIENT
  Sex: Male

DRUGS (1)
  1. MENS ROGAINE EXTRA STRENGTH [Suspect]
     Active Substance: MINOXIDIL
     Indication: Alopecia
     Dosage: QUARTER SIZE , ONCE A DAY
     Route: 065

REACTIONS (4)
  - Inappropriate schedule of product administration [Unknown]
  - Incorrect dose administered [Unknown]
  - Poor quality product administered [Unknown]
  - Product container issue [Unknown]

NARRATIVE: CASE EVENT DATE: 20250101
